FAERS Safety Report 15427033 (Version 1)
Quarter: 2018Q3

REPORT INFORMATION
  Report Type: Spontaneous
  Country: US (occurrence: US)
  Receive Date: 20180925
  Receipt Date: 20180925
  Transmission Date: 20181010
  Serious: No
  Sender: FDA-Public Use
  Company Number: US-INDIVIOR LIMITED-INDV-109270-2018

PATIENT
  Sex: Male

DRUGS (1)
  1. BUPRENORPHINE. [Suspect]
     Active Substance: BUPRENORPHINE
     Indication: PRODUCT USED FOR UNKNOWN INDICATION
     Dosage: 16MG, UNK
     Route: 065

REACTIONS (4)
  - Asthenia [Unknown]
  - Libido decreased [Unknown]
  - Hypogonadism [Unknown]
  - Blood testosterone decreased [Unknown]
